FAERS Safety Report 7197779-5 (Version None)
Quarter: 2010Q4

REPORT INFORMATION
  Report Type: 
  Country: None (occurrence: None)
  Receive Date: 20101227
  Receipt Date: 20101217
  Transmission Date: 20110411
  Serious: Yes (Life-Threatening, Hospitalization)
  Sender: FDA-Public Use
  Company Number: NL-GENZYME-CLOF-1001301

PATIENT
  Sex: Male
  Weight: 120 kg

DRUGS (17)
  1. EVOLTRA [Suspect]
     Indication: PRODUCT USED FOR UNKNOWN INDICATION
     Dosage: 30 MG, QD
     Route: 042
     Dates: start: 20101015, end: 20101019
  2. CYTARABINE [Suspect]
     Indication: PRODUCT USED FOR UNKNOWN INDICATION
     Dosage: 400 MG, QD
     Route: 042
     Dates: start: 20101015, end: 20101021
  3. IDARUBICIN [Suspect]
     Indication: PRODUCT USED FOR UNKNOWN INDICATION
     Dosage: 24 MG, QD
     Route: 042
     Dates: start: 20101015, end: 20101017
  4. MEROPENEM [Concomitant]
     Indication: PYREXIA
     Dosage: 3000 MG, QD
     Route: 042
     Dates: start: 20101020, end: 20101110
  5. CIPROFLOXACIN [Concomitant]
     Indication: PYREXIA
     Dosage: 800 MG, QD
     Route: 042
     Dates: start: 20101028, end: 20101106
  6. AMPHOTERICIN B [Concomitant]
     Indication: PYREXIA
     Dosage: 100 MG, QD
     Route: 042
     Dates: start: 20101024, end: 20101101
  7. AMPHOTERICIN B [Concomitant]
     Indication: PROPHYLAXIS
     Dosage: 400 MG, UNK
     Route: 048
     Dates: start: 20101015, end: 20101022
  8. AMPHOTERICIN B [Concomitant]
     Indication: EVIDENCE BASED TREATMENT
  9. FUROSEMID [Concomitant]
     Indication: WEIGHT INCREASED
     Dosage: 3000 MG, UNK
     Route: 042
     Dates: start: 20101015
  10. PROPOFOL [Concomitant]
     Indication: SEDATION
     Dosage: 360 MG, UNK
     Route: 042
     Dates: start: 20101104, end: 20101111
  11. SUFENTANIL CITRATE [Concomitant]
     Indication: SEDATION
     Dosage: 100 MCG, UNK
     Route: 042
     Dates: start: 20101104, end: 20101117
  12. SUFENTANIL CITRATE [Concomitant]
     Indication: ANALGESIC THERAPY
  13. MIDAZOLAM HCL [Concomitant]
     Indication: SEDATION
     Dosage: 15 MG, UNK
     Route: 042
     Dates: start: 20101114, end: 20101116
  14. PIPAMPERONE [Concomitant]
     Indication: PSYCHOTIC DISORDER
     Dosage: 80 MG, UNK
     Route: 048
     Dates: start: 20101105, end: 20101110
  15. POSACONAZOLE [Concomitant]
     Indication: PROPHYLAXIS
     Dosage: 600 MG, UNK
     Route: 048
     Dates: start: 20101023, end: 20101024
  16. CASPOFUNGIN [Concomitant]
     Indication: EVIDENCE BASED TREATMENT
     Dosage: 50 MG, UNK
     Route: 042
     Dates: start: 20101101, end: 20101110
  17. ITRACONAZOLE [Concomitant]
     Indication: EVIDENCE BASED TREATMENT
     Dosage: 400 MG, UNK
     Route: 048
     Dates: start: 20101110, end: 20101112

REACTIONS (4)
  - ARRHYTHMIA [None]
  - ENCEPHALOPATHY [None]
  - PNEUMONITIS [None]
  - SEPSIS [None]
